FAERS Safety Report 5678362-7 (Version None)
Quarter: 2008Q1

REPORT INFORMATION
  Report Type: 
  Country: None (occurrence: None)
  Receive Date: 20080321
  Receipt Date: 20080307
  Transmission Date: 20080703
  Serious: No
  Sender: FDA-Public Use
  Company Number: US022931

PATIENT
  Age: 42 Year
  Sex: Female
  Weight: 61.2356 kg

DRUGS (3)
  1. FENTORA [Suspect]
     Indication: BACK PAIN
     Dosage: 400 UG PRN BUCCAL
     Route: 002
     Dates: start: 20060101, end: 20060101
  2. FENTORA [Suspect]
     Indication: PAIN IN EXTREMITY
     Dosage: 400 UG PRN BUCCAL
     Route: 002
     Dates: start: 20060101, end: 20060101
  3. FENTANYL [Concomitant]

REACTIONS (2)
  - MOUTH ULCERATION [None]
  - ORAL ADMINISTRATION COMPLICATION [None]
